FAERS Safety Report 7479440-2 (Version None)
Quarter: 2011Q2

REPORT INFORMATION
  Report Type: 
  Country: None (occurrence: None)
  Receive Date: 20110513
  Receipt Date: 20110509
  Transmission Date: 20111010
  Serious: Yes (Hospitalization, Other)
  Sender: FDA-Public Use
  Company Number: FR-PFIZER INC-2011102456

PATIENT
  Age: 76 Year
  Sex: Female

DRUGS (6)
  1. LASIX [Concomitant]
     Indication: RENAL FAILURE CHRONIC
     Dosage: 40 MG, UNK
     Dates: start: 20110330
  2. GLYCERYL TRINITRATE [Concomitant]
     Dosage: 5 MG, UNK
     Dates: start: 20110330
  3. PANTOPRAZOLE [Suspect]
     Dosage: 20 MG, UNK
     Route: 048
     Dates: start: 20110330, end: 20110421
  4. COLCHICINE [Suspect]
     Indication: ARTHRALGIA
     Dosage: 1 DF, DAILY
     Route: 048
     Dates: start: 20110419, end: 20110421
  5. CARDENSIEL [Concomitant]
     Dosage: UNK
     Dates: start: 20110330
  6. AMLODIPINE BESYLATE [Concomitant]
     Dosage: UNK
     Dates: start: 20110330

REACTIONS (3)
  - PANCREATITIS [None]
  - HEPATITIS [None]
  - LEUKOPENIA [None]
